FAERS Safety Report 9283495 (Version 1)
Quarter: 2013Q2

REPORT INFORMATION
  Report Type: Spontaneous
  Country: US (occurrence: US)
  Receive Date: 20130510
  Receipt Date: 20130510
  Transmission Date: 20140414
  Serious: No
  Sender: FDA-Public Use
  Company Number: US-GLAXOSMITHKLINE-A1012661A

PATIENT
  Age: 68 Year
  Sex: Female

DRUGS (4)
  1. TYKERB [Suspect]
     Indication: BREAST CANCER
     Dosage: 5TAB PER DAY
     Route: 048
     Dates: start: 20121123
  2. FLU VAX [Concomitant]
  3. PNEUMONIA INJECTION [Concomitant]
  4. XELODA [Concomitant]

REACTIONS (1)
  - Skin fissures [Not Recovered/Not Resolved]
